FAERS Safety Report 23129330 (Version 2)
Quarter: 2023Q4

REPORT INFORMATION
  Report Type: Spontaneous
  Country: HR (occurrence: HR)
  Receive Date: 20231031
  Receipt Date: 20231103
  Transmission Date: 20240110
  Serious: Yes (Other)
  Sender: FDA-Public Use
  Company Number: HR-PFIZER INC-PV202300176516

PATIENT
  Age: 37 Year
  Sex: Male

DRUGS (3)
  1. METHYLPREDNISOLONE SODIUM SUCCINATE [Suspect]
     Active Substance: METHYLPREDNISOLONE SODIUM SUCCINATE
     Indication: Pulmonary toxicity
     Dosage: 1 MG/KG
  2. OXYGEN [Suspect]
     Active Substance: OXYGEN
     Indication: Pulmonary toxicity
     Dosage: UNK
  3. LEVOFLOXACIN [Suspect]
     Active Substance: LEVOFLOXACIN
     Indication: Antibiotic therapy
     Dosage: UNK

REACTIONS (3)
  - Steroid diabetes [Recovered/Resolved]
  - Drug ineffective for unapproved indication [Unknown]
  - Off label use [Unknown]
